FAERS Safety Report 4479628-9 (Version None)
Quarter: 2004Q4

REPORT INFORMATION
  Report Type: 
  Country: None (occurrence: None)
  Receive Date: 20041020
  Receipt Date: 20041012
  Transmission Date: 20050328
  Serious: Yes (Hospitalization)
  Sender: FDA-Public Use
  Company Number: CN-MERCK-0410CHN00024

PATIENT
  Age: 53 Year
  Sex: Male

DRUGS (2)
  1. VIOXX [Suspect]
     Indication: DERMATOMYOSITIS
     Route: 048
     Dates: start: 20040501, end: 20040901
  2. CEPHRADINE [Concomitant]
     Route: 065

REACTIONS (1)
  - PERICARDIAL EFFUSION [None]
